FAERS Safety Report 5870187-2 (Version None)
Quarter: 2008Q3

REPORT INFORMATION
  Report Type: 
  Country: None (occurrence: None)
  Receive Date: 20080904
  Receipt Date: 20080822
  Transmission Date: 20090109
  Serious: Yes (Death, Other)
  Sender: FDA-Public Use
  Company Number: US-PFIZER INC-2008063949

PATIENT
  Sex: Female

DRUGS (5)
  1. DILANTIN [Suspect]
     Indication: CONVULSION
     Dosage: DAILY DOSE:400MG
  2. VITAMIN TAB [Concomitant]
  3. NEURONTIN [Concomitant]
  4. ACCUPRIL [Concomitant]
  5. DIURETICS [Concomitant]

REACTIONS (3)
  - CONVULSION [None]
  - DEATH [None]
  - HAEMORRHAGE [None]
